FAERS Safety Report 8516210-8 (Version None)
Quarter: 2012Q3

REPORT INFORMATION
  Report Type: 
  Country: None (occurrence: None)
  Receive Date: 20120717
  Receipt Date: 20120706
  Transmission Date: 20120928
  Serious: Yes (Other)
  Sender: FDA-Public Use
  Company Number: US-ROCHE-1085153

PATIENT

DRUGS (2)
  1. MABTHERA [Suspect]
     Indication: DIFFUSE LARGE B-CELL LYMPHOMA
     Route: 042
  2. LENALIDOMIDE [Suspect]
     Indication: DIFFUSE LARGE B-CELL LYMPHOMA
     Route: 048

REACTIONS (10)
  - NEUTROPENIA [None]
  - OEDEMA [None]
  - FATIGUE [None]
  - LYMPHOPENIA [None]
  - RASH [None]
  - LIVER FUNCTION TEST ABNORMAL [None]
  - BLOOD LACTATE DEHYDROGENASE INCREASED [None]
  - ELECTROLYTE IMBALANCE [None]
  - THROMBOCYTOPENIA [None]
  - EMBOLISM [None]
